FAERS Safety Report 25657554 (Version 1)
Quarter: 2025Q3

REPORT INFORMATION
  Report Type: Spontaneous
  Country: US (occurrence: US)
  Receive Date: 20250808
  Receipt Date: 20250808
  Transmission Date: 20251020
  Serious: No
  Sender: GLAXOSMITHKLINE
  Company Number: US-GSK-US2025AMR095420

PATIENT
  Sex: Female

DRUGS (1)
  1. BENLYSTA [Suspect]
     Active Substance: BELIMUMAB
     Indication: Systemic lupus erythematosus
     Dosage: 200 MG/ML (ONCE A WEEK)

REACTIONS (5)
  - Pain [Unknown]
  - Rash [Unknown]
  - Swelling face [Unknown]
  - Peripheral swelling [Unknown]
  - Contusion [Unknown]
